FAERS Safety Report 9725261 (Version 1)
Quarter: 2013Q4

REPORT INFORMATION
  Report Type: Spontaneous
  Country: US (occurrence: None)
  Receive Date: 20131129
  Receipt Date: 20131129
  Transmission Date: 20140711
  Serious: No
  Sender: FDA-Public Use
  Company Number: 2013-00146

PATIENT
  Sex: Female

DRUGS (2)
  1. UNSPECIFIED ZICAM PRODUCT [Suspect]
     Indication: MULTIPLE ALLERGIES
     Dates: start: 2007, end: 2011
  2. UNSPECIFIED ZICAM PRODUCT [Suspect]
     Indication: NASOPHARYNGITIS
     Dates: start: 2007, end: 2011

REACTIONS (1)
  - Anosmia [None]
